FAERS Safety Report 4521399-1 (Version None)
Quarter: 2004Q4

REPORT INFORMATION
  Report Type: 
  Country: None (occurrence: None)
  Receive Date: 20041208
  Receipt Date: 20041101
  Transmission Date: 20050328
  Serious: Yes (Life-Threatening, Hospitalization)
  Sender: FDA-Public Use
  Company Number: US-MERCK-0411USA00202

PATIENT
  Age: 95 Year
  Sex: Female
  Weight: 51 kg

DRUGS (10)
  1. VIOXX [Suspect]
     Indication: LUMBAR SPINAL STENOSIS
     Route: 048
     Dates: start: 20021024, end: 20040901
  2. VIOXX [Suspect]
     Indication: VERTEBROPLASTY
     Route: 048
     Dates: start: 20021024, end: 20040901
  3. SYNTHROID [Concomitant]
     Route: 065
  4. PROTONIX [Concomitant]
     Route: 065
  5. DIGITEK [Concomitant]
     Route: 065
  6. DARVOCET-N 100 [Concomitant]
     Route: 065
  7. PRILOSEC [Concomitant]
     Route: 065
  8. TIAZAC [Concomitant]
     Route: 065
  9. NEXIUM [Concomitant]
     Route: 065
  10. COZAAR [Concomitant]
     Route: 048

REACTIONS (23)
  - ANAEMIA [None]
  - AORTIC ATHEROSCLEROSIS [None]
  - AORTIC VALVE CALCIFICATION [None]
  - ASTHMA [None]
  - BRAIN NATRIURETIC PEPTIDE INCREASED [None]
  - BRONCHOSPASM [None]
  - CARDIAC FAILURE CONGESTIVE [None]
  - CHEST PAIN [None]
  - DIASTOLIC DYSFUNCTION [None]
  - DILATATION ATRIAL [None]
  - DYSPNOEA [None]
  - ELECTROCARDIOGRAM T WAVE AMPLITUDE DECREASED [None]
  - ELECTROCARDIOGRAM T WAVE INVERSION [None]
  - EMPHYSEMA [None]
  - HAEMATOCRIT DECREASED [None]
  - HAEMOGLOBIN DECREASED [None]
  - MITRAL VALVE INCOMPETENCE [None]
  - PNEUMONIA ASPIRATION [None]
  - PULMONARY VALVE INCOMPETENCE [None]
  - RALES [None]
  - TRICUSPID VALVE INCOMPETENCE [None]
  - VENTRICULAR HYPERTROPHY [None]
  - WHEEZING [None]
